FAERS Safety Report 19862390 (Version 1)
Quarter: 2021Q3

REPORT INFORMATION
  Report Type: Spontaneous
  Country: IT (occurrence: IT)
  Receive Date: 20210921
  Receipt Date: 20210921
  Transmission Date: 20211014
  Serious: Yes (Other)
  Sender: FDA-Public Use
  Company Number: IT-TEVA-2021-IT-1953853

PATIENT
  Age: 56 Year
  Sex: Male
  Weight: 79 kg

DRUGS (4)
  1. CALCIO LEVOFOLINATO TEVA 25 MG POLVERE PER SOLUZIONE INIETTABILE [Concomitant]
     Active Substance: LEVOLEUCOVORIN CALCIUM
     Indication: NEUROENDOCRINE TUMOUR
     Dosage: 260MILLIGRAM
     Dates: start: 20210714
  2. FLUOROURACILE TEVA 5 G/100 ML SOLUZIONE PER INFUSIONE [Suspect]
     Active Substance: FLUOROURACIL
     Indication: NEUROENDOCRINE TUMOUR
     Dosage: 530MILLIGRAM
     Route: 040
     Dates: start: 20210714
  3. IRINOTECAN HYDROCHLORIDE TRIHYDRATE [Suspect]
     Active Substance: IRINOTECAN HYDROCHLORIDE
     Indication: ENDOCRINE NEOPLASM
     Dosage: 230MILLIGRAM
     Dates: start: 20210714
  4. FLUOROURACILE TEVA 5 G/100 ML SOLUZIONE PER INFUSIONE [Suspect]
     Active Substance: FLUOROURACIL
     Dosage: 3190MILLIGRAM
     Dates: start: 20210714

REACTIONS (2)
  - Neutropenia [Unknown]
  - Leukopenia [Unknown]

NARRATIVE: CASE EVENT DATE: 20210827
